FAERS Safety Report 8901691 (Version 1)
Quarter: 2012Q4

REPORT INFORMATION
  Report Type: Spontaneous
  Country: BR (occurrence: None)
  Receive Date: 20121101
  Receipt Date: 20121101
  Transmission Date: 20130627
  Serious: Yes (Other)
  Sender: FDA-Public Use
  Company Number: DKLU1085571

PATIENT
  Age: 33 Year
  Sex: Female

DRUGS (2)
  1. ONFI [Suspect]
     Indication: SLEEP DISORDER
     Route: 048
     Dates: start: 2010, end: 20121007
  2. AAS (ACETYLSALICYLIC ACID) [Concomitant]

REACTIONS (8)
  - Vertigo [None]
  - Vision blurred [None]
  - Restlessness [None]
  - Tremor [None]
  - Drug withdrawal syndrome [None]
  - Drug ineffective [None]
  - Syncope [None]
  - Drug dependence [None]
